FAERS Safety Report 21562146 (Version 1)
Quarter: 2022Q4

REPORT INFORMATION
  Report Type: Report from Study
  Country: US (occurrence: US)
  Receive Date: 20221107
  Receipt Date: 20221107
  Transmission Date: 20230113
  Serious: Yes (Hospitalization, Other)
  Sender: FDA-Public Use
  Company Number: US-EXELIXIS-CABO-22056708

PATIENT
  Sex: Female

DRUGS (2)
  1. CABOMETYX [Suspect]
     Active Substance: CABOZANTINIB S-MALATE
     Indication: Renal cancer
     Dosage: 40 MG, QD
     Route: 048
     Dates: end: 20221028
  2. INLYTA [Suspect]
     Active Substance: AXITINIB
     Indication: Renal cancer
     Dosage: UNK

REACTIONS (15)
  - Oesophagitis [Unknown]
  - Nervousness [Unknown]
  - Abdominal distension [Unknown]
  - Erythema [Unknown]
  - Pain [Recovering/Resolving]
  - Nausea [Recovered/Resolved]
  - Dry skin [Unknown]
  - Fatigue [Unknown]
  - Blood pressure increased [Unknown]
  - Blood glucose increased [Unknown]
  - Cancer pain [Recovering/Resolving]
  - Neoplasm [Recovering/Resolving]
  - Illusion [Recovering/Resolving]
  - Skin ulcer [Recovering/Resolving]
  - Weight decreased [Unknown]
